FAERS Safety Report 7630518-X (Version None)
Quarter: 2011Q3

REPORT INFORMATION
  Report Type: 
  Country: None (occurrence: None)
  Receive Date: 20110722
  Receipt Date: 20080826
  Transmission Date: 20111222
  Serious: Yes (Disabling, Other)
  Sender: FDA-Public Use
  Company Number: US-BAYER-200824886NA

PATIENT
  Age: 25 Year
  Sex: Female
  Weight: 33.4 kg

DRUGS (30)
  1. OMNISCAN [Suspect]
     Indication: NUCLEAR MAGNETIC RESONANCE IMAGING
     Dosage: 8 ML, ONCE
     Dates: start: 20050822, end: 20050822
  2. OPTIMARK [Suspect]
     Indication: NUCLEAR MAGNETIC RESONANCE IMAGING
  3. EPOGEN [Concomitant]
  4. CALCITRIOL [Concomitant]
  5. MYFORTIC [Concomitant]
  6. MAGNEVIST [Suspect]
     Dosage: 8 ML, ONCE
     Route: 042
     Dates: start: 20040105, end: 20040105
  7. MAGNEVIST [Suspect]
     Dosage: 6 OR 60 ML, ONCE
     Dates: start: 20040205, end: 20040205
  8. MAGNEVIST [Suspect]
     Dosage: 6 OR 60 ML, ONCE
     Dates: start: 20040205, end: 20040205
  9. MAGNEVIST [Suspect]
     Dosage: 20 ML, ONCE
     Dates: start: 20040428, end: 20040428
  10. OMNISCAN [Suspect]
     Indication: ANGIOGRAM
     Dosage: 15 ML, ONCE
     Dates: start: 19990921, end: 19990921
  11. MAGNEVIST [Suspect]
     Indication: NUCLEAR MAGNETIC RESONANCE IMAGING
     Dosage: 8 ML, ONCE
     Route: 042
     Dates: start: 20000121, end: 20000121
  12. OPTIMARK [Suspect]
     Indication: ANGIOGRAM
  13. PROHANCE [Suspect]
     Indication: NUCLEAR MAGNETIC RESONANCE IMAGING
  14. PROGRAF [Concomitant]
  15. METOPROLOL TARTRATE [Concomitant]
  16. PREDNISONE [Concomitant]
  17. MAGNEVIST [Suspect]
     Dosage: 8 ML, ONCE
     Dates: start: 20040125, end: 20040125
  18. OMNISCAN [Suspect]
     Dosage: 40 ML, ONCE
     Dates: start: 20050906, end: 20050906
  19. MULTIHANCE [Suspect]
     Indication: NUCLEAR MAGNETIC RESONANCE IMAGING
  20. MULTIHANCE [Suspect]
     Indication: ANGIOGRAM
  21. OXYCODONE HCL [Concomitant]
  22. LISINOPRIL [Concomitant]
  23. MAGNEVIST [Suspect]
     Indication: ANGIOGRAM
     Dosage: 8 ML, ONCE
     Route: 042
     Dates: start: 20040105, end: 20040105
  24. PROHANCE [Suspect]
     Indication: ANGIOGRAM
  25. PROCRIT [Concomitant]
  26. DIOVAN [Concomitant]
  27. MAGNEVIST [Suspect]
     Indication: VENOGRAM
     Dosage: 8 ML, ONCE
     Dates: start: 20040125, end: 20040125
  28. MAGNEVIST [Suspect]
     Dosage: 20 ML, ONCE
     Dates: start: 20040428, end: 20040428
  29. FENTANYL [Concomitant]
  30. CELLCEPT [Concomitant]

REACTIONS (10)
  - GAIT DISTURBANCE [None]
  - NEPHROGENIC SYSTEMIC FIBROSIS [None]
  - SKIN HYPERTROPHY [None]
  - LIMB DISCOMFORT [None]
  - DEPRESSION [None]
  - SKIN TIGHTNESS [None]
  - PAIN [None]
  - ANXIETY [None]
  - INJURY [None]
  - ANHEDONIA [None]
